FAERS Safety Report 16930729 (Version 1)
Quarter: 2019Q4

REPORT INFORMATION
  Report Type: Report from Study
  Country: GB (occurrence: GB)
  Receive Date: 20191017
  Receipt Date: 20191017
  Transmission Date: 20200122
  Serious: Yes (Death)
  Sender: FDA-Public Use
  Company Number: GB-PFIZER INC-2019447658

PATIENT

DRUGS (1)
  1. LORVIQUA (LORLATINIB) [Suspect]
     Active Substance: LORLATINIB

REACTIONS (1)
  - Death [Fatal]
